FAERS Safety Report 10549642 (Version 3)
Quarter: 2015Q1

REPORT INFORMATION
  Report Type: Spontaneous
  Country: US (occurrence: US)
  Receive Date: 20141028
  Receipt Date: 20150113
  Transmission Date: 20150720
  Serious: Yes (Life-Threatening, Hospitalization, Other)
  Sender: FDA-Public Use
  Company Number: US-ABBVIE-14P-163-1298961-00

PATIENT
  Age: 55 Year
  Sex: Male

DRUGS (1)
  1. ANDROGEL [Suspect]
     Active Substance: TESTOSTERONE
     Indication: BLOOD TESTOSTERONE DECREASED
     Route: 061
     Dates: start: 201207, end: 201403

REACTIONS (12)
  - Anhedonia [Unknown]
  - Social problem [Unknown]
  - Injury [Unknown]
  - Pain [Unknown]
  - Economic problem [Unknown]
  - Asthenia [Unknown]
  - Anxiety [Unknown]
  - Physical disability [Unknown]
  - Cardiac disorder [Unknown]
  - Pulmonary embolism [Unknown]
  - Fear [Unknown]
  - Mental disorder [Unknown]

NARRATIVE: CASE EVENT DATE: 20140317
